FAERS Safety Report 7012225-X (Version None)
Quarter: 2010Q3

REPORT INFORMATION
  Report Type: 
  Country: None (occurrence: None)
  Receive Date: 20100924
  Receipt Date: 20100914
  Transmission Date: 20110219
  Serious: Yes (Hospitalization)
  Sender: FDA-Public Use
  Company Number: SE-NOVOPROD-314764

PATIENT
  Age: 67 Year
  Sex: Male

DRUGS (9)
  1. VICTOZA [Suspect]
     Indication: TYPE 2 DIABETES MELLITUS
     Dosage: 0.6 MG, QD
     Dates: start: 20100101
  2. VICTOZA [Suspect]
     Dosage: 1.2 MG, QD
     Dates: start: 20101001
  3. METFORMIN [Concomitant]
     Dosage: 1 G, TID
     Route: 048
  4. GLIMEPIRIDE [Concomitant]
     Dosage: 4 MG, QD
     Route: 048
  5. ACETYLSALICYLIC ACID [Concomitant]
     Dosage: 75 MG, QD
     Route: 048
  6. METOPROLOL TARTRATE [Concomitant]
     Dosage: 50 MG, QD
     Route: 048
  7. SIMVASTATIN [Concomitant]
     Dosage: 40 MG, QD
     Route: 048
  8. AMLODIPINE [Concomitant]
     Dosage: 10 MG, QD
     Route: 048
  9. VALSARTAN + HIDROCLOROTIAZIDA GENFAR [Concomitant]
     Dosage: 160MG/12.5 MG, QD
     Route: 048

REACTIONS (2)
  - ATRIAL FIBRILLATION [None]
  - BLOOD THYROID STIMULATING HORMONE DECREASED [None]
